FAERS Safety Report 20791796 (Version 2)
Quarter: 2022Q2

REPORT INFORMATION
  Report Type: Spontaneous
  Country: US (occurrence: US)
  Receive Date: 20220505
  Receipt Date: 20220519
  Transmission Date: 20220720
  Serious: Yes (Hospitalization)
  Sender: FDA-Public Use
  Company Number: US-TEVA-2022-US-2033221

PATIENT
  Age: 59 Year
  Sex: Male

DRUGS (2)
  1. ACTIQ [Suspect]
     Active Substance: FENTANYL CITRATE
     Indication: Back pain
     Route: 048
  2. DURAMORPH [Concomitant]
     Active Substance: MORPHINE SULFATE
     Indication: Back pain
     Dosage: FORMULATION: PUMP
     Route: 037

REACTIONS (8)
  - Dental caries [Unknown]
  - Periodontal disease [Unknown]
  - Parvimonas micra infection [Unknown]
  - Intervertebral disc degeneration [Recovering/Resolving]
  - Device failure [Recovering/Resolving]
  - Psoas abscess [Unknown]
  - Urinary incontinence [Recovered/Resolved]
  - Gingivitis [Unknown]
